FAERS Safety Report 20166332 (Version 2)
Quarter: 2021Q4

REPORT INFORMATION
  Report Type: Report from Study
  Country: US (occurrence: US)
  Receive Date: 20211209
  Receipt Date: 20211221
  Transmission Date: 20220303
  Serious: Yes (Other)
  Sender: FDA-Public Use
  Company Number: US-BAYER-2021A249002

PATIENT
  Age: 47 Year
  Sex: Female
  Weight: 71.202 kg

DRUGS (6)
  1. ADEMPAS [Suspect]
     Active Substance: RIOCIGUAT
     Indication: Pulmonary arterial hypertension
     Dosage: UNK
     Dates: start: 20211005
  2. ADEMPAS [Suspect]
     Active Substance: RIOCIGUAT
     Indication: Pulmonary arterial hypertension
     Dosage: 1 MG, TID
     Route: 048
     Dates: start: 2021
  3. ADEMPAS [Suspect]
     Active Substance: RIOCIGUAT
     Indication: Pulmonary arterial hypertension
     Dosage: 1.5 MG, TID
     Route: 048
     Dates: start: 2021
  4. LEVAQUIN [Suspect]
     Active Substance: LEVOFLOXACIN
     Indication: Respiratory tract infection
     Dosage: UNK
     Dates: start: 202111
  5. OPSUMIT [Concomitant]
     Active Substance: MACITENTAN
     Dosage: UNK
  6. UPTRAVI [Concomitant]
     Active Substance: SELEXIPAG
     Dosage: UNK

REACTIONS (12)
  - Respiratory tract infection [None]
  - Chemotherapy [None]
  - Dizziness [Not Recovered/Not Resolved]
  - Swelling face [None]
  - Rash [None]
  - Petechiae [None]
  - Peripheral swelling [None]
  - Pain in extremity [None]
  - Nasal oedema [Not Recovered/Not Resolved]
  - Nasal dryness [None]
  - Erythema [None]
  - Nasal congestion [None]

NARRATIVE: CASE EVENT DATE: 20210101
